FAERS Safety Report 10068881 (Version 3)
Quarter: 2014Q2

REPORT INFORMATION
  Report Type: Report from Study
  Country: FR (occurrence: FR)
  Receive Date: 20140409
  Receipt Date: 20140418
  Transmission Date: 20141212
  Serious: Yes (Other)
  Sender: FDA-Public Use
  Company Number: FR-JNJFOC-20140309177

PATIENT
  Age: 57 Year
  Sex: Male
  Weight: 75 kg

DRUGS (3)
  1. SIMEPREVIR [Suspect]
     Indication: HEPATITIS C
     Dosage: TREATMENT DURATION 24 WEEKS
     Route: 065
     Dates: start: 20140225
  2. PEGINTERFERON ALFA [Suspect]
     Indication: HEPATITIS C
     Dosage: TREATMENT DURATION 24 WEEKS.
     Route: 065
  3. RIBAVIRIN [Suspect]
     Indication: HEPATITIS C
     Dosage: TREATMENT DURATION 24 WEEKS
     Route: 065

REACTIONS (5)
  - Aspartate aminotransferase increased [Unknown]
  - Alanine aminotransferase increased [Unknown]
  - Alanine aminotransferase increased [Unknown]
  - Neutrophil count decreased [Unknown]
  - Drug prescribing error [Unknown]
